FAERS Safety Report 6209511-X (Version None)
Quarter: 2009Q2

REPORT INFORMATION
  Report Type: 
  Country: None (occurrence: None)
  Receive Date: 20090601
  Receipt Date: 20090527
  Transmission Date: 20091009
  Serious: Yes (Death, Other)
  Sender: FDA-Public Use
  Company Number: PHEH2008US06599

PATIENT
  Sex: Male

DRUGS (13)
  1. ZOMETA [Suspect]
     Indication: METASTASES TO BONE
     Dosage: UNK
     Route: 042
     Dates: start: 20070611, end: 20080401
  2. CHEMOTHERAPEUTICS NOS [Concomitant]
  3. RADIATION THERAPY [Concomitant]
  4. COUMADIN [Concomitant]
  5. SORAFENIB [Concomitant]
     Dosage: UNK
     Dates: start: 20070801, end: 20071201
  6. HYDROCODONE BITARTRATE [Concomitant]
  7. MORPHINE SULFATE [Concomitant]
  8. DEXAMETHASONE 4MG TAB [Concomitant]
  9. ENALAPRIL MALEATE [Concomitant]
  10. OMEPRAZOLE [Concomitant]
  11. MULTI-VITAMINS [Concomitant]
  12. FERROUS SULFATE TAB [Concomitant]
  13. LACTULOSE [Concomitant]

REACTIONS (20)
  - ANXIETY [None]
  - BACTERIAL DISEASE CARRIER [None]
  - BONE DISORDER [None]
  - CELLULITIS [None]
  - COMPRESSION FRACTURE [None]
  - DEATH [None]
  - DECREASED INTEREST [None]
  - DEHYDRATION [None]
  - DIZZINESS [None]
  - DYSPNOEA [None]
  - HYPONATRAEMIA [None]
  - HYPOTENSION [None]
  - INJURY [None]
  - INTESTINAL PERFORATION [None]
  - OSTEONECROSIS [None]
  - PAIN [None]
  - PAIN IN EXTREMITY [None]
  - PULMONARY CONGESTION [None]
  - TUMOUR EMBOLISM [None]
  - WOUND DEHISCENCE [None]
